FAERS Safety Report 15658046 (Version 1)
Quarter: 2018Q4

REPORT INFORMATION
  Report Type: Spontaneous
  Country: GB (occurrence: GB)
  Receive Date: 20181126
  Receipt Date: 20181126
  Transmission Date: 20190205
  Serious: Yes (Disabling, Other)
  Sender: FDA-Public Use
  Company Number: GB-TEVA-2018-GB-978588

PATIENT
  Age: 38 Year
  Sex: Female
  Weight: 68 kg

DRUGS (7)
  1. GLUCOSE [Concomitant]
     Active Substance: DEXTROSE
     Route: 042
  2. CYCLIZINE LACTATE [Concomitant]
     Active Substance: CYCLIZINE LACTATE
     Dosage: 50MG/1ML
     Route: 065
  3. SODIUM CHLORIDE. [Concomitant]
     Active Substance: SODIUM CHLORIDE
     Route: 042
  4. CIPROFLOXACIN. [Suspect]
     Active Substance: CIPROFLOXACIN
     Indication: URINARY TRACT INFECTION
     Dosage: 800 MILLIGRAM DAILY; 400MG/200ML
     Route: 042
     Dates: start: 20180918, end: 20180924
  5. CO-AMOXICLAV [Concomitant]
     Active Substance: AMOXICILLIN\CLAVULANATE POTASSIUM
     Indication: URINARY TRACT INFECTION
     Route: 042
  6. CIPROFLOXACIN. [Suspect]
     Active Substance: CIPROFLOXACIN
     Route: 042
     Dates: start: 20180917, end: 20180917
  7. PARACETAMOL [Concomitant]
     Active Substance: ACETAMINOPHEN
     Route: 042

REACTIONS (16)
  - Prescribed overdose [Unknown]
  - Paraesthesia [Unknown]
  - Condition aggravated [Unknown]
  - Neuralgia [Unknown]
  - Peripheral swelling [Unknown]
  - Asthenia [Unknown]
  - Incorrect drug administration rate [Unknown]
  - Fatigue [Recovered/Resolved]
  - Nausea [Recovered/Resolved]
  - Neuropathy peripheral [Unknown]
  - Carpal tunnel syndrome [Unknown]
  - Joint noise [Unknown]
  - Pain [Not Recovered/Not Resolved]
  - Joint dislocation [Unknown]
  - Hyperaesthesia [Unknown]
  - Dizziness [Recovered/Resolved]

NARRATIVE: CASE EVENT DATE: 20180917
